FAERS Safety Report 8509586-9 (Version None)
Quarter: 2012Q3

REPORT INFORMATION
  Report Type: 
  Country: None (occurrence: None)
  Receive Date: 20120713
  Receipt Date: 20120705
  Transmission Date: 20120928
  Serious: Yes (Hospitalization)
  Sender: FDA-Public Use
  Company Number: CA-JNJFOC-20120703131

PATIENT
  Sex: Female
  Weight: 110.1 kg

DRUGS (10)
  1. PENTASA [Concomitant]
     Route: 065
  2. ALENDRONATE SODIUM [Concomitant]
     Route: 065
  3. TINZAPARIN [Concomitant]
     Route: 065
  4. CALCIUM [Concomitant]
     Route: 065
  5. SYNTHROID [Concomitant]
     Route: 065
  6. REMICADE [Suspect]
     Indication: CROHN'S DISEASE
     Route: 042
     Dates: start: 20120326
  7. ACETAMINOPHEN [Concomitant]
     Route: 065
  8. IRON [Concomitant]
     Route: 065
  9. PREVACID [Concomitant]
     Route: 065
  10. VITAMIN D [Concomitant]
     Route: 065

REACTIONS (5)
  - RECTAL HAEMORRHAGE [None]
  - SYNCOPE [None]
  - NASOPHARYNGITIS [None]
  - VOMITING [None]
  - INTERNATIONAL NORMALISED RATIO INCREASED [None]
